FAERS Safety Report 9380500 (Version 1)
Quarter: 2013Q3

REPORT INFORMATION
  Report Type: Spontaneous
  Country: US (occurrence: US)
  Receive Date: 20130702
  Receipt Date: 20130702
  Transmission Date: 20140515
  Serious: No
  Sender: FDA-Public Use
  Company Number: US-009507513-1307USA001296

PATIENT
  Sex: Female

DRUGS (1)
  1. COPPERTONE KIDS LOTION SPF 70+ [Suspect]
     Indication: PRODUCT USED FOR UNKNOWN INDICATION
     Dosage: UNK, UNKNOWN
     Route: 061

REACTIONS (5)
  - Accidental exposure to product [Unknown]
  - Ocular hyperaemia [Recovering/Resolving]
  - Eye swelling [Unknown]
  - Nasal disorder [Unknown]
  - Pain [Recovering/Resolving]
